FAERS Safety Report 4383412-4 (Version None)
Quarter: 2004Q2

REPORT INFORMATION
  Report Type: 
  Country: None (occurrence: None)
  Receive Date: 20040623
  Receipt Date: 20040614
  Transmission Date: 20050107
  Serious: Yes (Life-Threatening)
  Sender: FDA-Public Use
  Company Number: FR-ROCHE-371112

PATIENT
  Age: 9 Month
  Sex: Male

DRUGS (1)
  1. ROCEPHIN [Suspect]
     Indication: ATELECTASIS
     Route: 042
     Dates: start: 20040202, end: 20040204

REACTIONS (3)
  - COUGH [None]
  - HYPOTONIA [None]
  - RASH [None]
